FAERS Safety Report 9342515 (Version 1)
Quarter: 2013Q2

REPORT INFORMATION
  Report Type: Spontaneous
  Country: FR (occurrence: FR)
  Receive Date: 20130611
  Receipt Date: 20130611
  Transmission Date: 20140414
  Serious: Yes (Hospitalization, Other)
  Sender: FDA-Public Use
  Company Number: FR-JNJFOC-20130604881

PATIENT
  Age: 26 Year
  Sex: Female

DRUGS (9)
  1. IXPRIM [Suspect]
     Indication: PRODUCT USED FOR UNKNOWN INDICATION
     Route: 048
     Dates: start: 20130301, end: 20130301
  2. LOXAPAC [Suspect]
     Indication: PRODUCT USED FOR UNKNOWN INDICATION
     Route: 048
     Dates: start: 20130301, end: 20130301
  3. THERALENE [Concomitant]
     Indication: PRODUCT USED FOR UNKNOWN INDICATION
     Route: 048
  4. SERESTA [Concomitant]
     Indication: DEPRESSION
     Route: 048
  5. EFFEXOR [Concomitant]
     Indication: DEPRESSION
     Route: 048
  6. STILNOX [Concomitant]
     Indication: DEPRESSION
     Route: 048
  7. DAFALGAN [Concomitant]
     Indication: PAIN
     Route: 048
  8. ATARAX [Concomitant]
     Indication: ANXIETY
     Route: 048
  9. TRANXENE [Concomitant]
     Indication: ANXIETY
     Route: 048

REACTIONS (2)
  - Coma [Recovered/Resolved]
  - Intentional overdose [Recovered/Resolved]
